FAERS Safety Report 19035174 (Version 1)
Quarter: 2021Q1

REPORT INFORMATION
  Report Type: Other
  Country: US (occurrence: US)
  Receive Date: 20210320
  Receipt Date: 20210320
  Transmission Date: 20210420
  Serious: No
  Sender: FDA-Public Use
  Company Number: US-ACORDA-ACO_167531_2021

PATIENT
  Sex: Male

DRUGS (1)
  1. INBRIJA [Suspect]
     Active Substance: LEVODOPA
     Indication: PARKINSON^S DISEASE
     Dosage: 84 MILLIGRAM: 2 CAPSULES, AS NEEDED, 4 TIMES DAILY
     Dates: start: 20210113, end: 20210211

REACTIONS (3)
  - Nasal discharge discolouration [Unknown]
  - Product residue present [Unknown]
  - Epistaxis [Unknown]
